FAERS Safety Report 18258400 (Version 1)
Quarter: 2020Q3

REPORT INFORMATION
  Report Type: Other
  Country: US (occurrence: US)
  Receive Date: 20200911
  Receipt Date: 20200911
  Transmission Date: 20201103
  Serious: No
  Sender: FDA-Public Use
  Company Number: US-LEADIANT BIOSCIENCES INC-2019STPI000565

PATIENT

DRUGS (8)
  1. VALSARTAN. [Concomitant]
     Active Substance: VALSARTAN
  2. PREMARIN [Concomitant]
     Active Substance: ESTROGENS, CONJUGATED
  3. METOPROLOL SUCCINATE. [Concomitant]
     Active Substance: METOPROLOL SUCCINATE
  4. KEPPRA XR [Concomitant]
     Active Substance: LEVETIRACETAM
  5. MAXALT [Concomitant]
     Active Substance: RIZATRIPTAN BENZOATE
  6. DRONABINOL. [Concomitant]
     Active Substance: DRONABINOL
  7. LEVETIRACETAM. [Concomitant]
     Active Substance: LEVETIRACETAM
  8. MATULANE [Suspect]
     Active Substance: PROCARBAZINE HYDROCHLORIDE
     Indication: BRAIN NEOPLASM MALIGNANT
     Dosage: 100 MILLIGRAM DAILY ON DAYS 8?21
     Route: 048
     Dates: start: 20190612

REACTIONS (2)
  - Bone marrow disorder [Not Recovered/Not Resolved]
  - Neutrophil count decreased [Not Recovered/Not Resolved]

NARRATIVE: CASE EVENT DATE: 201909
